FAERS Safety Report 7147820-0 (Version None)
Quarter: 2010Q4

REPORT INFORMATION
  Report Type: 
  Country: None (occurrence: None)
  Receive Date: 20101206
  Receipt Date: 20101206
  Transmission Date: 20110411
  Serious: Yes (Life-Threatening)
  Sender: FDA-Public Use
  Company Number: None

PATIENT
  Sex: Female
  Weight: 58.9676 kg

DRUGS (1)
  1. BENICAR [Suspect]
     Indication: HYPERTENSION
     Dates: start: 20101105, end: 20101203

REACTIONS (5)
  - DIZZINESS [None]
  - DYSSTASIA [None]
  - FATIGUE [None]
  - SKIN SWELLING [None]
  - VERTIGO [None]
